FAERS Safety Report 7770938-6 (Version None)
Quarter: 2011Q3

REPORT INFORMATION
  Report Type: 
  Country: None (occurrence: None)
  Receive Date: 20110922
  Receipt Date: 20101213
  Transmission Date: 20111222
  Serious: No
  Sender: FDA-Public Use
  Company Number: US-ASTRAZENECA-2010SE58860

PATIENT
  Age: 40 Year
  Sex: Male

DRUGS (1)
  1. SEROQUEL XR [Suspect]
     Indication: MAJOR DEPRESSION
     Route: 048
     Dates: start: 20101101

REACTIONS (5)
  - MALAISE [None]
  - STRESS [None]
  - IRRITABILITY [None]
  - FRUSTRATION [None]
  - MUSCULOSKELETAL PAIN [None]
